FAERS Safety Report 6759852-2 (Version None)
Quarter: 2010Q2

REPORT INFORMATION
  Report Type: 
  Country: None (occurrence: None)
  Receive Date: 20100608
  Receipt Date: 20100601
  Transmission Date: 20101027
  Serious: Yes (Other)
  Sender: FDA-Public Use
  Company Number: PHHO2010FR06132

PATIENT
  Sex: Male

DRUGS (3)
  1. NEORAL [Suspect]
     Indication: RENAL TRANSPLANT
     Dosage: 200 MG / DAY
     Route: 048
     Dates: start: 20081119
  2. CELLCEPT [Suspect]
     Indication: RENAL TRANSPLANT
     Dosage: 2 G / DAY
     Route: 048
     Dates: start: 20061207
  3. CORTANCYL [Suspect]
     Indication: RENAL TRANSPLANT
     Dosage: 2.5 MG / DAY
     Route: 048
     Dates: start: 20070221

REACTIONS (2)
  - BASAL CELL CARCINOMA [None]
  - SKIN NEOPLASM EXCISION [None]
